FAERS Safety Report 8931471 (Version 1)
Quarter: 2012Q4

REPORT INFORMATION
  Report Type: Report from Study
  Country: IT (occurrence: IT)
  Receive Date: 20121128
  Receipt Date: 20121128
  Transmission Date: 20130627
  Serious: Yes (Other)
  Sender: FDA-Public Use
  Company Number: PHHY2012IT107870

PATIENT
  Age: 61 Year
  Sex: Male

DRUGS (1)
  1. CERTICAN [Suspect]
     Indication: HEART TRANSPLANT
     Dosage: 0.75 mg, UNK
     Route: 048

REACTIONS (4)
  - Neuropathy peripheral [Unknown]
  - Non-Hodgkin^s lymphoma [Unknown]
  - Dyslipidaemia [Unknown]
  - Hypertension [Unknown]
